FAERS Safety Report 17920152 (Version 1)
Quarter: 2020Q2

REPORT INFORMATION
  Report Type: Spontaneous
  Country: SE (occurrence: SE)
  Receive Date: 20200620
  Receipt Date: 20200620
  Transmission Date: 20200714
  Serious: Yes (Other)
  Sender: FDA-Public Use
  Company Number: SE-ROCHE-2626316

PATIENT
  Age: 63 Year
  Sex: Female

DRUGS (1)
  1. CAPECITABINE. [Suspect]
     Active Substance: CAPECITABINE
     Indication: PRODUCT USED FOR UNKNOWN INDICATION
     Dosage: MOST RECENT DOSE: 12/JUN/2019
     Route: 048

REACTIONS (4)
  - Gait disturbance [Unknown]
  - Pain [Unknown]
  - Limb discomfort [Unknown]
  - Exophthalmos [Unknown]

NARRATIVE: CASE EVENT DATE: 201907
